FAERS Safety Report 9407123 (Version 1)
Quarter: 2013Q3

REPORT INFORMATION
  Report Type: Spontaneous
  Country: GB (occurrence: GB)
  Receive Date: 20130718
  Receipt Date: 20130718
  Transmission Date: 20140515
  Serious: Yes (Other)
  Sender: FDA-Public Use
  Company Number: PHHY2013GB074125

PATIENT
  Age: 61 Year
  Sex: Female
  Weight: 166 kg

DRUGS (11)
  1. SERTRALINE [Suspect]
     Indication: DEPRESSION
     Dosage: 100 MG, UNK
     Route: 048
  2. SERTRALINE [Suspect]
     Dosage: 50 MG, UNK
     Route: 048
  3. OMEPRAZOLE [Concomitant]
  4. ESTRADIOL [Concomitant]
     Dosage: 10 MG, UNK
  5. LEVOTHYROXINE SODIUM [Concomitant]
  6. MONTELUKAST [Concomitant]
  7. SALBUTAMOL [Concomitant]
  8. SYMBICORT [Concomitant]
  9. FLIXONASE AQUEOUS [Concomitant]
  10. COD LIVER OIL [Concomitant]
  11. PROCHLORPERAZINE MALEATE [Concomitant]

REACTIONS (4)
  - Gastrointestinal disorder [Unknown]
  - Gastroenteritis norovirus [Unknown]
  - Vomiting [Unknown]
  - Malaise [Unknown]
